FAERS Safety Report 13909348 (Version 3)
Quarter: 2017Q4

REPORT INFORMATION
  Report Type: Report from Study
  Country: US (occurrence: US)
  Receive Date: 20170828
  Receipt Date: 20171215
  Transmission Date: 20180320
  Serious: No
  Sender: FDA-Public Use
  Company Number: PHEH2017US027269

PATIENT
  Weight: 107.9 kg

DRUGS (1)
  1. COSENTYX [Suspect]
     Active Substance: SECUKINUMAB
     Indication: JUVENILE PSORIATIC ARTHRITIS
     Dosage: 300 MG (2 PENS), Q4W
     Route: 058
     Dates: start: 201704

REACTIONS (1)
  - Pruritus generalised [Unknown]
